FAERS Safety Report 5551971-1 (Version None)
Quarter: 2007Q4

REPORT INFORMATION
  Report Type: 
  Country: None (occurrence: None)
  Receive Date: 20071212
  Receipt Date: 20071130
  Transmission Date: 20080405
  Serious: Yes (Other)
  Sender: FDA-Public Use
  Company Number: GB-PFIZER INC-2007102417

PATIENT
  Age: 40 Year
  Sex: Female
  Weight: 67 kg

DRUGS (3)
  1. CHAMPIX [Suspect]
     Indication: SMOKING CESSATION THERAPY
     Route: 048
     Dates: start: 20071030, end: 20071108
  2. MOMETASONE FUROATE [Concomitant]
     Route: 045
  3. NORETHISTERONE [Concomitant]

REACTIONS (2)
  - DISORIENTATION [None]
  - DYSPHASIA [None]
